FAERS Safety Report 9195189 (Version 1)
Quarter: 2013Q1

REPORT INFORMATION
  Report Type: Spontaneous
  Country: US (occurrence: US)
  Receive Date: 20130328
  Receipt Date: 20130328
  Transmission Date: 20140127
  Serious: No
  Sender: FDA-Public Use
  Company Number: US-ALLERGAN-1218121US

PATIENT
  Age: 42 Year
  Sex: Female

DRUGS (4)
  1. LATISSE 0.03% [Suspect]
     Indication: GROWTH OF EYELASHES
     Dosage: 4 GTT, QHS
     Route: 061
     Dates: start: 2009
  2. AMPICILLIN [Concomitant]
     Indication: ROSACEA
     Dosage: 250 MG, QD
     Route: 048
  3. VISINE                             /00256502/ [Concomitant]
     Indication: PRODUCT USED FOR UNKNOWN INDICATION
     Dosage: UNK UNK, PRN
     Route: 047
  4. EYE DROPS NOS [Concomitant]
     Indication: BLEPHARITIS
     Dosage: UNK, PRN
     Route: 047

REACTIONS (2)
  - Drug administered at inappropriate site [Unknown]
  - Madarosis [Unknown]
